FAERS Safety Report 9186392 (Version 1)
Quarter: 2013Q1

REPORT INFORMATION
  Report Type: Spontaneous
  Country: US (occurrence: US)
  Receive Date: 20130325
  Receipt Date: 20130325
  Transmission Date: 20140127
  Serious: No
  Sender: FDA-Public Use
  Company Number: US-009507513-1303USA010285

PATIENT
  Sex: Female

DRUGS (9)
  1. SINGULAIR [Suspect]
     Indication: ASTHMA
     Dosage: 10 MG, QD
     Route: 048
     Dates: start: 201209
  2. SINGULAIR [Suspect]
     Indication: HYPERSENSITIVITY
  3. SINGULAIR [Suspect]
     Indication: ASTHMA
  4. SINGULAIR [Suspect]
     Indication: HYPERSENSITIVITY
  5. FLOVENT [Concomitant]
  6. PROVENTIL [Concomitant]
  7. ZYRTEC [Concomitant]
  8. HYDROXYCHLOROQUINE SULFATE [Concomitant]
  9. VITAMINS (UNSPECIFIED) [Concomitant]

REACTIONS (2)
  - Flatulence [Not Recovered/Not Resolved]
  - Diarrhoea [Not Recovered/Not Resolved]
